FAERS Safety Report 11037690 (Version 1)
Quarter: 2015Q2

REPORT INFORMATION
  Report Type: Spontaneous
  Country: US (occurrence: None)
  Receive Date: 20150415
  Receipt Date: 20150415
  Transmission Date: 20150821
  Serious: Yes (Disabling)
  Sender: FDA-Public Use
  Company Number: None

PATIENT
  Age: 38 Year
  Sex: Female
  Weight: 74.84 kg

DRUGS (6)
  1. CLINDAMYCIN - BENZOYL PEROXIDE [Suspect]
     Active Substance: BENZOYL PEROXIDE\CLINDAMYCIN PHOSPHATE
     Indication: ACNE
     Dosage: APPLY 1-2 TIMES PER DAY
     Route: 061
  2. VENTOLIN [Concomitant]
     Active Substance: ALBUTEROL SULFATE
  3. MILK THISTLE [Concomitant]
     Active Substance: MILK THISTLE
  4. DIM [Concomitant]
  5. INDOLE-3-CARBINOL [Concomitant]
     Active Substance: DIETARY SUPPLEMENT
  6. CALCIUM MANGANESE [Concomitant]

REACTIONS (1)
  - Uterine leiomyoma [None]

NARRATIVE: CASE EVENT DATE: 20150413
